FAERS Safety Report 6506751-7 (Version None)
Quarter: 2009Q4

REPORT INFORMATION
  Report Type: 
  Country: None (occurrence: None)
  Receive Date: 20091221
  Receipt Date: 20091209
  Transmission Date: 20100525
  Serious: Yes (Other)
  Sender: FDA-Public Use
  Company Number: US-PFIZER INC-2009308802

PATIENT
  Sex: Female

DRUGS (2)
  1. ZITHROMAX [Suspect]
     Indication: COUGH
     Dosage: 250 MG, 2X/DAY
  2. ZITHROMAX [Suspect]
     Indication: NASOPHARYNGITIS

REACTIONS (5)
  - COUGH [None]
  - DYSPHAGIA [None]
  - GAIT DISTURBANCE [None]
  - MACULAR DEGENERATION [None]
  - VISUAL ACUITY REDUCED [None]
